FAERS Safety Report 12086769 (Version 1)
Quarter: 2016Q1

REPORT INFORMATION
  Report Type: Spontaneous
  Country: US (occurrence: US)
  Receive Date: 20160217
  Receipt Date: 20160217
  Transmission Date: 20160526
  Serious: No
  Sender: FDA-Public Use
  Company Number: US-ALLERGAN-1509648US

PATIENT
  Sex: Female
  Weight: 75.28 kg

DRUGS (6)
  1. RESTASIS [Suspect]
     Active Substance: CYCLOSPORINE
     Indication: DRY EYE
     Dosage: ONE GTT OU; AM AND PM
     Route: 047
  2. FEMHRT [Concomitant]
     Active Substance: ETHINYL ESTRADIOL\NORETHINDRONE ACETATE
     Indication: HORMONE THERAPY
     Dosage: 0.5/2.5 MCG TABLET
     Route: 048
  3. CRESTOR [Concomitant]
     Active Substance: ROSUVASTATIN CALCIUM
     Indication: BLOOD CHOLESTEROL INCREASED
     Dosage: 20 MG, QD
     Route: 048
  4. LOSARTAN. [Concomitant]
     Active Substance: LOSARTAN
     Indication: HYPERTENSION
     Dosage: 50 MG, QAM
     Route: 048
  5. VITAMIN D2 [Concomitant]
     Active Substance: ERGOCALCIFEROL
     Indication: SUPPLEMENTATION THERAPY
     Dosage: 50000 IU, ON SUNDAYS
     Route: 048
  6. BROMOCRYPTINE MESYLATE [Concomitant]
     Indication: PITUITARY TUMOUR BENIGN
     Dosage: 1/2 OF 2.5 MG TABLET
     Route: 048

REACTIONS (2)
  - Cataract [Unknown]
  - Medication error [Unknown]

NARRATIVE: CASE EVENT DATE: 2014
